FAERS Safety Report 6251901-3 (Version None)
Quarter: 2009Q2

REPORT INFORMATION
  Report Type: 
  Country: None (occurrence: None)
  Receive Date: 20090629
  Receipt Date: 20090627
  Transmission Date: 20091009
  Serious: Yes (Other)
  Sender: FDA-Public Use
  Company Number: 305127

PATIENT
  Age: 28 Year
  Sex: Male

DRUGS (3)
  1. CYTARABINE [Suspect]
     Indication: ACUTE MYELOID LEUKAEMIA
     Dosage: 100 MG/M2, 1 DAY; 3 G/M2 (2 DAY)
     Dates: start: 20060402
  2. CYTARABINE [Suspect]
     Indication: ACUTE MYELOID LEUKAEMIA
     Dosage: 100 MG/M2, 1 DAY; 3 G/M2 (2 DAY)
     Dates: start: 20060605
  3. IDARUBICIN HCL [Suspect]
     Indication: ACUTE MYELOID LEUKAEMIA
     Dosage: 12 MG/M2, 1 DAY
     Dates: start: 20060402

REACTIONS (10)
  - FEBRILE NEUTROPENIA [None]
  - GLOMERULONEPHRITIS PROLIFERATIVE [None]
  - HAEMOGLOBIN DECREASED [None]
  - HENOCH-SCHONLEIN PURPURA [None]
  - INTERNATIONAL NORMALISED RATIO INCREASED [None]
  - LEUKOCYTOCLASTIC VASCULITIS [None]
  - PLATELET COUNT INCREASED [None]
  - PNEUMONIA PRIMARY ATYPICAL [None]
  - PSEUDOMEMBRANOUS COLITIS [None]
  - RENAL FAILURE [None]
